FAERS Safety Report 19586011 (Version 8)
Quarter: 2021Q4

REPORT INFORMATION
  Report Type: Report from Study
  Country: CH (occurrence: CH)
  Receive Date: 20210720
  Receipt Date: 20211008
  Transmission Date: 20220303
  Serious: Yes (Life-Threatening, Hospitalization)
  Sender: FDA-Public Use
  Company Number: CH-CELGENE-CHE-20210704002

PATIENT
  Age: 60 Year
  Sex: Male
  Weight: 82 kg

DRUGS (54)
  1. INVESTIGATIONAL PRODUCT [Suspect]
     Active Substance: INVESTIGATIONAL PRODUCT
     Indication: Plasma cell myeloma
     Dosage: 477.28 X 10^6 CAR + T CELLS
     Route: 041
     Dates: start: 20210708, end: 20210708
  2. FLUDARABINE [Suspect]
     Active Substance: FLUDARABINE PHOSPHATE
     Indication: Plasma cell myeloma
     Dosage: 62.4 MILLIGRAM
     Route: 041
     Dates: start: 20210703, end: 20210705
  3. CYCLOPHOSPHAMIDE [Suspect]
     Active Substance: CYCLOPHOSPHAMIDE
     Indication: Plasma cell myeloma
     Dosage: 624 MILLIGRAM
     Route: 041
     Dates: start: 20210703, end: 20210705
  4. DEXAMETHASONE [Concomitant]
     Active Substance: DEXAMETHASONE
     Indication: Plasma cell myeloma
     Dosage: 8 MILLIGRAM
     Route: 041
     Dates: start: 20210602, end: 20210616
  5. DEXAMETHASONE [Concomitant]
     Active Substance: DEXAMETHASONE
     Indication: Back pain
     Dosage: 28 MILLIGRAM
     Route: 048
     Dates: start: 20210602, end: 20210616
  6. DEXAMETHASONE [Concomitant]
     Active Substance: DEXAMETHASONE
     Indication: Cytokine release syndrome
     Route: 065
     Dates: start: 20210611, end: 20210627
  7. DEXAMETHASONE [Concomitant]
     Active Substance: DEXAMETHASONE
     Route: 065
     Dates: start: 20210708, end: 20210708
  8. DEXAMETHASONE [Concomitant]
     Active Substance: DEXAMETHASONE
     Route: 065
     Dates: start: 20210713, end: 20210716
  9. ELOTUZUMAB [Concomitant]
     Active Substance: ELOTUZUMAB
     Indication: Plasma cell myeloma
     Dosage: 850 MILLIGRAM
     Route: 041
     Dates: start: 20210602, end: 20210616
  10. POMALIDOMIDE [Concomitant]
     Active Substance: POMALIDOMIDE
     Indication: Plasma cell myeloma
     Dosage: 4 MILLIGRAM
     Route: 048
     Dates: start: 20210602, end: 20210616
  11. APIXABAN [Concomitant]
     Active Substance: APIXABAN
     Indication: Hypercoagulation
     Route: 065
     Dates: start: 20160723, end: 20210629
  12. APIXABAN [Concomitant]
     Active Substance: APIXABAN
     Indication: Protein C deficiency
  13. LISINOPRIL [Concomitant]
     Active Substance: LISINOPRIL
     Indication: Hypertension
     Route: 065
     Dates: end: 20210701
  14. FOLIC ACID [Concomitant]
     Active Substance: FOLIC ACID
     Indication: Vitamin supplementation
     Route: 065
  15. Zolendronat [Concomitant]
     Indication: Prophylaxis
     Route: 065
     Dates: start: 20210603, end: 20210616
  16. Zolendronat [Concomitant]
     Indication: Prophylaxis
  17. ACETAMINOPHEN [Concomitant]
     Active Substance: ACETAMINOPHEN
     Indication: Chemotherapy side effect prophylaxis
     Route: 065
     Dates: start: 20210603, end: 20210616
  18. ACETAMINOPHEN [Concomitant]
     Active Substance: ACETAMINOPHEN
     Indication: Cytokine release syndrome
     Route: 065
     Dates: start: 20210708
  19. ACETAMINOPHEN [Concomitant]
     Active Substance: ACETAMINOPHEN
     Indication: Prophylaxis
     Route: 065
     Dates: start: 20210708, end: 20210708
  20. ACETAMINOPHEN [Concomitant]
     Active Substance: ACETAMINOPHEN
     Route: 065
     Dates: start: 20210715, end: 20210719
  21. Cimetidin [Concomitant]
     Indication: Chemotherapy side effect prophylaxis
     Route: 065
     Dates: start: 20210603, end: 20210616
  22. Cimetidin [Concomitant]
     Indication: Premedication
     Route: 065
     Dates: start: 20210706, end: 20210706
  23. Cimetidin [Concomitant]
     Indication: Prophylaxis
     Route: 065
     Dates: start: 20210708, end: 20210708
  24. CLEMASTINE [Concomitant]
     Active Substance: CLEMASTINE
     Indication: Chemotherapy side effect prophylaxis
     Route: 065
     Dates: start: 20210603, end: 20210616
  25. CLEMASTINE [Concomitant]
     Active Substance: CLEMASTINE
     Indication: Premedication
     Route: 065
     Dates: start: 20210706, end: 20210706
  26. CLEMASTINE [Concomitant]
     Active Substance: CLEMASTINE
     Indication: Cytokine release syndrome
     Route: 065
     Dates: start: 20210708, end: 20210708
  27. BACTRIM [Concomitant]
     Active Substance: SULFAMETHOXAZOLE\TRIMETHOPRIM
     Indication: Infection prophylaxis
     Route: 065
     Dates: start: 20210602
  28. VALACYCLOVIR HYDROCHLORIDE [Concomitant]
     Active Substance: VALACYCLOVIR HYDROCHLORIDE
     Indication: Antiviral prophylaxis
     Route: 065
     Dates: start: 20210602
  29. FILGRASTIM [Concomitant]
     Active Substance: FILGRASTIM
     Indication: Neutropenia
     Route: 065
     Dates: start: 20210630, end: 20210701
  30. Enoxaparin natrium [Concomitant]
     Indication: Thrombosis prophylaxis
     Route: 065
     Dates: start: 20210630, end: 20210710
  31. ONDANSETRON [Concomitant]
     Active Substance: ONDANSETRON
     Indication: Prophylaxis of nausea and vomiting
     Route: 065
     Dates: start: 20210701
  32. ONDANSETRON [Concomitant]
     Active Substance: ONDANSETRON
     Indication: Nausea
     Route: 065
     Dates: start: 20210706
  33. ONDANSETRON [Concomitant]
     Active Substance: ONDANSETRON
     Indication: Vomiting
  34. ROSUVASTATIN [Concomitant]
     Active Substance: ROSUVASTATIN
     Indication: Prophylaxis
     Route: 065
     Dates: start: 20210701
  35. AMLODIPINE BESYLATE [Concomitant]
     Active Substance: AMLODIPINE BESYLATE
     Indication: Hypertension
     Route: 065
     Dates: start: 20210702, end: 20210714
  36. Human immunglobulin [Concomitant]
     Indication: Antibody test abnormal
     Route: 065
     Dates: start: 20210706, end: 20210706
  37. METOCLOPRAMIDE [Concomitant]
     Active Substance: METOCLOPRAMIDE
     Indication: Nausea
     Route: 065
     Dates: start: 20210706, end: 20210709
  38. PEGFILGRASTIM [Concomitant]
     Active Substance: PEGFILGRASTIM
     Indication: Neutropenia
     Route: 065
     Dates: start: 20210709, end: 20210709
  39. Natriumpicosulfate [Concomitant]
     Indication: Constipation prophylaxis
     Route: 065
     Dates: start: 20210707, end: 20210707
  40. CEFEPIME [Concomitant]
     Active Substance: CEFEPIME HYDROCHLORIDE
     Indication: Infection prophylaxis
     Route: 065
     Dates: start: 20210708, end: 20210709
  41. CEFEPIME [Concomitant]
     Active Substance: CEFEPIME HYDROCHLORIDE
     Route: 065
     Dates: start: 20210709, end: 20210709
  42. CEFEPIME [Concomitant]
     Active Substance: CEFEPIME HYDROCHLORIDE
     Route: 065
     Dates: start: 20210710, end: 20210716
  43. POSACONAZOLE [Concomitant]
     Active Substance: POSACONAZOLE
     Indication: Infection prophylaxis
     Route: 065
     Dates: start: 20210715, end: 20210721
  44. HUMAN RED BLOOD CELL [Concomitant]
     Active Substance: HUMAN RED BLOOD CELL
     Indication: Anaemia
     Route: 065
     Dates: start: 20210616, end: 20210616
  45. HUMAN RED BLOOD CELL [Concomitant]
     Active Substance: HUMAN RED BLOOD CELL
     Route: 065
     Dates: start: 20210628, end: 20210628
  46. HUMAN RED BLOOD CELL [Concomitant]
     Active Substance: HUMAN RED BLOOD CELL
     Route: 065
     Dates: start: 20210630, end: 20210630
  47. HUMAN RED BLOOD CELL [Concomitant]
     Active Substance: HUMAN RED BLOOD CELL
     Route: 065
     Dates: start: 20210701, end: 20210701
  48. HUMAN RED BLOOD CELL [Concomitant]
     Active Substance: HUMAN RED BLOOD CELL
     Route: 065
     Dates: start: 20210703, end: 20210704
  49. HUMAN RED BLOOD CELL [Concomitant]
     Active Substance: HUMAN RED BLOOD CELL
     Route: 065
     Dates: start: 20210715, end: 20210716
  50. PLATELETS [Concomitant]
     Active Substance: HUMAN PLATELET, ALLOGENIC
     Indication: Thrombocytopenia
     Route: 065
     Dates: start: 20210630, end: 20210630
  51. PLATELETS [Concomitant]
     Active Substance: HUMAN PLATELET, ALLOGENIC
     Indication: Cytokine release syndrome
     Route: 065
     Dates: start: 20210701, end: 20210701
  52. PLATELETS [Concomitant]
     Active Substance: HUMAN PLATELET, ALLOGENIC
     Route: 065
     Dates: start: 20210702, end: 20210702
  53. PLATELETS [Concomitant]
     Active Substance: HUMAN PLATELET, ALLOGENIC
     Route: 065
     Dates: start: 20210716, end: 20210716
  54. ATOVAQUONE [Concomitant]
     Active Substance: ATOVAQUONE
     Indication: Infection prophylaxis
     Route: 065
     Dates: start: 20210707

REACTIONS (2)
  - Cytokine release syndrome [Recovered/Resolved]
  - Bradycardia [Recovered/Resolved]

NARRATIVE: CASE EVENT DATE: 20210716
